FAERS Safety Report 26106858 (Version 1)
Quarter: 2025Q4

REPORT INFORMATION
  Report Type: Report from Study
  Country: US (occurrence: US)
  Receive Date: 20251201
  Receipt Date: 20251201
  Transmission Date: 20260117
  Serious: Yes (Death, Hospitalization)
  Sender: ROCHE
  Company Number: US-ROCHE-10000443010

PATIENT
  Sex: Female

DRUGS (12)
  1. OCREVUS [Suspect]
     Active Substance: OCRELIZUMAB
     Indication: Primary progressive multiple sclerosis
     Route: 065
     Dates: start: 20240702, end: 20240731
  2. OCREVUS [Suspect]
     Active Substance: OCRELIZUMAB
     Indication: Relapsing-remitting multiple sclerosis
     Route: 042
     Dates: start: 2017, end: 20240724
  3. GABAPENTIN [Concomitant]
     Active Substance: GABAPENTIN
  4. BACLOFEN [Concomitant]
     Active Substance: BACLOFEN
  5. OXYBUTYNIN [Concomitant]
     Active Substance: OXYBUTYNIN
  6. METOPROLOL [Concomitant]
     Active Substance: METOPROLOL
  7. DALFAMPRIDINE [Concomitant]
     Active Substance: DALFAMPRIDINE
  8. NAPROXEN [Concomitant]
     Active Substance: NAPROXEN
  9. SOLU-MEDROL [Concomitant]
     Active Substance: METHYLPREDNISOLONE SODIUM SUCCINATE
  10. TYSABRI [Concomitant]
     Active Substance: NATALIZUMAB
  11. ZEPOSIA [Concomitant]
     Active Substance: OZANIMOD HYDROCHLORIDE
  12. COPAXONE [Concomitant]
     Active Substance: GLATIRAMER ACETATE

REACTIONS (2)
  - Procedural complication [Fatal]
  - Thyroid cancer [Unknown]
